FAERS Safety Report 7152774-7 (Version None)
Quarter: 2010Q4

REPORT INFORMATION
  Report Type: 
  Country: None (occurrence: None)
  Receive Date: 20101213
  Receipt Date: 20101201
  Transmission Date: 20110411
  Serious: Yes (Other)
  Sender: FDA-Public Use
  Company Number: CA-PFIZER INC-2010163588

PATIENT
  Sex: Male

DRUGS (1)
  1. PRISTIQ [Suspect]

REACTIONS (2)
  - DRUG ABUSE [None]
  - DRUG DEPENDENCE [None]
